FAERS Safety Report 8406903-5 (Version None)
Quarter: 2012Q2

REPORT INFORMATION
  Report Type: 
  Country: None (occurrence: None)
  Receive Date: 20120529
  Receipt Date: 20040219
  Transmission Date: 20120825
  Serious: Yes (Other)
  Sender: FDA-Public Use
  Company Number: 02100-JPN-04-0040

PATIENT
  Age: 70 Year
  Sex: Male

DRUGS (4)
  1. PROTECADIN (LAFUTIDINE) [Concomitant]
  2. LOSARTAN POTASSIUM [Concomitant]
  3. CONIEL (BENIDIPINE HYDROCHLORIDE) [Concomitant]
  4. PLETAL [Suspect]
     Dosage: 100 MG, BID, ORAL
     Route: 048
     Dates: start: 20031227, end: 20040110

REACTIONS (3)
  - VENTRICULAR EXTRASYSTOLES [None]
  - CORONARY ARTERY STENOSIS [None]
  - CHEST PAIN [None]
